FAERS Safety Report 9996913 (Version 2)
Quarter: 2014Q2

REPORT INFORMATION
  Report Type: Spontaneous
  Country: JP (occurrence: JP)
  Receive Date: 20140311
  Receipt Date: 20140410
  Transmission Date: 20141212
  Serious: Yes (Death)
  Sender: FDA-Public Use
  Company Number: JP-MALLINCKRODT-T201401503

PATIENT
  Age: 71 Year
  Sex: Male
  Weight: 60 kg

DRUGS (25)
  1. METHADONE [Suspect]
     Indication: CANCER PAIN
     Dosage: 10 MG (30 MG DAILY DOSE)
     Route: 048
     Dates: start: 20130910, end: 20130916
  2. METHADONE [Suspect]
     Dosage: 15 MG (45 MG DAILY DOSE)
     Route: 048
     Dates: start: 20130917, end: 20130925
  3. METHADONE [Suspect]
     Dosage: 25 MG (50 MG DAILY DOSE)
     Route: 048
     Dates: start: 20130926, end: 20130930
  4. METHADONE [Suspect]
     Dosage: 20 MG (60 MG DAILY DOSE)
     Route: 048
     Dates: start: 20131001, end: 20131007
  5. METHADONE [Suspect]
     Dosage: 25 MG (75 MG DAILY DOSE)
     Route: 048
     Dates: start: 20131008, end: 20131029
  6. METHADONE [Suspect]
     Dosage: 30 MG (90 MG DAILY DOSE)
     Route: 048
     Dates: start: 20131030, end: 20131129
  7. FENTOS [Concomitant]
     Indication: CANCER PAIN
     Dosage: SWITCHED TO METHAPAIN ON 10-FEB-2013
  8. OXINORM [Concomitant]
     Dosage: UNK, PRN
     Route: 048
     Dates: start: 20130909, end: 20131108
  9. FENTANYL CITRATE [Concomitant]
     Dosage: UNK, PRN
     Route: 048
     Dates: start: 20131108, end: 20131128
  10. MORPHINE HYDROCHLORIDE [Concomitant]
     Dosage: UNK, PRN
     Route: 051
     Dates: start: 20131129, end: 20131130
  11. ROPION [Concomitant]
     Dosage: 150 MG, UNK
     Route: 051
     Dates: start: 20130911, end: 20131201
  12. LOXONIN [Concomitant]
     Dosage: 180 MG, UNK
     Route: 048
     Dates: end: 20130912
  13. CALONAL [Concomitant]
     Dosage: 1200 MG, UNK
     Route: 048
     Dates: end: 20131201
  14. LYRICA [Concomitant]
     Dosage: 150 MG, UNK
     Route: 048
     Dates: start: 20130907, end: 20131201
  15. NEXIUM [Concomitant]
     Dosage: 20 MG, UNK
     Route: 048
     Dates: start: 20130801, end: 20131201
  16. NAUZELIN [Concomitant]
     Dosage: 30 MG, UNK
     Route: 048
     Dates: start: 20130801, end: 20131201
  17. MYSLEE [Concomitant]
     Dosage: 15 MG, UNK
     Route: 048
     Dates: end: 20131201
  18. DAIOKANZOTO [Concomitant]
     Dosage: 7.5 G, UNK
     Route: 048
     Dates: start: 20130821, end: 20131201
  19. SLOW K [Concomitant]
     Dosage: 1200 MG, UNK
     Route: 048
     Dates: start: 20130930, end: 20130930
  20. ASPARA K [Concomitant]
     Dosage: 600 MG, UNK
     Route: 048
     Dates: start: 20130930, end: 20131002
  21. ROCEPHIN [Concomitant]
     Dosage: 2 G, UNK
     Route: 051
     Dates: start: 20131115, end: 20131129
  22. YOKUKANSAN [Concomitant]
     Dosage: 7.5 G, UNK
     Route: 048
     Dates: start: 20131120, end: 20131128
  23. RISPERDAL [Concomitant]
     Dosage: 0.5 MG, UNK
     Route: 048
     Dates: start: 20131121, end: 20131121
  24. DORMICUM [Concomitant]
     Dosage: 50 MG, UNK
     Route: 051
     Dates: start: 20131130, end: 20131201
  25. SERENACE [Concomitant]
     Dosage: 10 MG, UNK
     Route: 051
     Dates: start: 20131130, end: 20131201

REACTIONS (5)
  - Rectal cancer [Fatal]
  - Hypokalaemia [Recovered/Resolved]
  - Dysphagia [Unknown]
  - Urinary tract infection [Recovered/Resolved]
  - Delirium [Not Recovered/Not Resolved]
